FAERS Safety Report 5086853-5 (Version None)
Quarter: 2006Q3

REPORT INFORMATION
  Report Type: 
  Country: None (occurrence: None)
  Receive Date: 20060818
  Receipt Date: 20060803
  Transmission Date: 20061208
  Serious: Yes (Hospitalization)
  Sender: FDA-Public Use
  Company Number: CLOF-10205

PATIENT
  Age: 67 Year
  Sex: Male
  Weight: 85.1 kg

DRUGS (27)
  1. CLOFARABINE [Suspect]
     Indication: ACUTE MYELOID LEUKAEMIA
     Dosage: 47.7 MG IV
     Route: 042
     Dates: start: 20060128, end: 20060201
  2. CLOPARABINE [Suspect]
     Indication: ACUTE MYELOID LEUKAEMIA
     Dosage: 46.4 MG QD X 5 IV
     Route: 042
     Dates: start: 20060315, end: 20060319
  3. CYSTOSINE ARABINOSIDE [Suspect]
     Indication: ACUTE MYELOID LEUKAEMIA
     Dosage: 212 MG ONCE IV
     Route: 042
     Dates: start: 20060127, end: 20060201
  4. CYSTOSINE ARABINOSIDE [Suspect]
     Indication: ACUTE MYELOID LEUKAEMIA
     Dates: start: 20060301, end: 20060301
  5. ACYCLOVIR [Concomitant]
  6. NEXIUM [Concomitant]
  7. MULTI-VITAMIN [Concomitant]
  8. ISOSORBIDE DINITRATE [Concomitant]
  9. FLOMAX [Concomitant]
  10. LESCOL [Concomitant]
  11. SPIRIVA [Concomitant]
  12. ADVAIR DISKUS 100/50 [Concomitant]
  13. NICOTINE [Concomitant]
  14. HYDROCHLOROTHIAZIDE [Concomitant]
  15. GM-CSF [Concomitant]
  16. AVANDAMET [Concomitant]
  17. MAGNESIUM OXIDE [Concomitant]
  18. K-DUR 10 [Concomitant]
  19. ALBUTEROL [Concomitant]
  20. OXYCODONE HCL [Concomitant]
  21. DEXAMETHASONE [Concomitant]
  22. TOPROL-XL [Concomitant]
  23. GLUCOTROL [Concomitant]
  24. IMDUR [Concomitant]
  25. NITROGLYCERIN [Concomitant]
  26. ZETIA [Concomitant]
  27. VORICONAZOLE [Concomitant]

REACTIONS (34)
  - ABDOMINAL TENDERNESS [None]
  - ARTHRALGIA [None]
  - ASTHENIA [None]
  - BLOOD GASES ABNORMAL [None]
  - BONE PAIN [None]
  - CHILLS [None]
  - CYANOSIS [None]
  - DEPRESSED LEVEL OF CONSCIOUSNESS [None]
  - DYSPNOEA [None]
  - ECCHYMOSIS [None]
  - ELECTROCARDIOGRAM PR SHORTENED [None]
  - ERYTHEMA [None]
  - FATIGUE [None]
  - FEBRILE NEUTROPENIA [None]
  - HEADACHE [None]
  - HYPERGLYCAEMIA [None]
  - HYPOTENSION [None]
  - MALAISE [None]
  - MUCOSAL INFLAMMATION [None]
  - MYALGIA [None]
  - NAUSEA [None]
  - NEUTROPENIA [None]
  - PULMONARY OEDEMA [None]
  - PULMONARY VASCULAR DISORDER [None]
  - RALES [None]
  - RENAL FAILURE [None]
  - RESPIRATORY DISTRESS [None]
  - RESTLESSNESS [None]
  - SEPSIS [None]
  - SINUS TACHYCARDIA [None]
  - SKIN LESION [None]
  - VOMITING [None]
  - WEIGHT DECREASED [None]
  - WHEEZING [None]
